FAERS Safety Report 17493077 (Version 1)
Quarter: 2020Q1

REPORT INFORMATION
  Report Type: Spontaneous
  Country: DK (occurrence: DK)
  Receive Date: 20200304
  Receipt Date: 20200304
  Transmission Date: 20200409
  Serious: Yes (Hospitalization)
  Sender: FDA-Public Use
  Company Number: DK-TEVA-2020-DK-1193720

PATIENT
  Age: 44 Year
  Sex: Female

DRUGS (14)
  1. ARIPIPRAZOLE. [Suspect]
     Active Substance: ARIPIPRAZOLE
     Indication: SCHIZOPHRENIA
     Dosage: STRENGTH: 10 MG, 15 MG. DOSAGE: UP TO 30 MG PER DAY.
     Route: 048
     Dates: start: 2009
  2. ELTROXIN [Concomitant]
     Active Substance: LEVOTHYROXINE
     Indication: HYPOTHYROIDISM
     Dosage: STRENGTH: 50 MCG
     Route: 048
     Dates: start: 202001
  3. VENTOLINE [Concomitant]
     Active Substance: ALBUTEROL
     Indication: ASTHMA
     Dosage: 2 DOSAGE FORMS, STRENGTH: 0.2 MG / DISC
     Route: 055
     Dates: start: 202002
  4. PALIPERIDONE. [Suspect]
     Active Substance: PALIPERIDONE
     Indication: SCHIZOPHRENIA
     Dosage: 3 MILLIGRAM DAILY; STRENGTH: 3 MG DOSAGE: CURRENT 3 MG DAILY
     Route: 048
  5. KALEORID [Concomitant]
     Active Substance: POTASSIUM CHLORIDE
     Indication: MINERAL SUPPLEMENTATION
     Dosage: STRENGTH: 750 MG
     Route: 048
     Dates: start: 202001
  6. PANTOPRAZOLE [Concomitant]
     Active Substance: PANTOPRAZOLE
     Indication: GASTROOESOPHAGEAL REFLUX DISEASE
     Dosage: STRENGTH: 20 MG
     Route: 048
     Dates: start: 202001
  7. SPIOLTO RESPIMAT [Concomitant]
     Active Substance: OLODATEROL HYDROCHLORIDE\TIOTROPIUM BROMIDE MONOHYDRATE
     Indication: ASTHMA
     Dosage: 2 DOSAGE FORMS, STRENGTH: 2.5+2.5 MCG
     Route: 055
     Dates: start: 202001
  8. LASIX [Concomitant]
     Active Substance: FUROSEMIDE
     Indication: DIURETIC THERAPY
     Dosage: STRENGTH: 60 MG
     Route: 048
     Dates: start: 202001
  9. SALBUTAMOL [Concomitant]
     Active Substance: ALBUTEROL
     Indication: BRONCHOSPASM
     Dosage: 1 DOSAGE FORMS, STRENGTH: 1 MG / ML
     Dates: start: 202001
  10. NICORETTE [Concomitant]
     Active Substance: NICOTINE
     Indication: SMOKING CESSATION THERAPY
     Dosage: 1 DOSAGE FORM, STRENGTH: 4 MG, DOSAGE: 1 GUM AS NEEDED, AT MOST 24 TIMES DAILY
     Route: 048
     Dates: start: 2019
  11. AIROMIR [Concomitant]
     Active Substance: ALBUTEROL SULFATE
     Indication: ASTHMA
     Dosage: STRENGTH: 0.1 MG / DOSE, DOSAGE: 4 BREATHS AS NEEDED AT MOST 6 TIMES DAILY
     Route: 055
     Dates: start: 202001
  12. PANODIL [Concomitant]
     Active Substance: ACETAMINOPHEN
     Indication: PAIN
     Dosage: 4000 MG, STRENGTH: 500 MG
     Route: 048
     Dates: start: 202001
  13. FLIXOTIDE [Concomitant]
     Active Substance: FLUTICASONE PROPIONATE
     Indication: ASTHMA
     Dosage: 2 DOSAGE FORMS, STRENGTH: 250 MCG / DOSE
     Route: 055
     Dates: start: 202001
  14. LAKTULOSE ^NMI^ [Concomitant]
     Indication: CONSTIPATION
     Dosage: 15 ML, STRENGTH: 600 MG / ML, DOSAGE: 15 ML AS NEEDED NO MORE THAN 2 TIMES DAILY
     Route: 048
     Dates: start: 202001

REACTIONS (3)
  - Pickwickian syndrome [Not Recovered/Not Resolved]
  - Dyspnoea [Not Recovered/Not Resolved]
  - Weight increased [Not Recovered/Not Resolved]
